FAERS Safety Report 8967176 (Version 1)
Quarter: 2012Q4

REPORT INFORMATION
  Report Type: 
  Country: US (occurrence: US)
  Receive Date: 20121214
  Receipt Date: 20121214
  Transmission Date: 20130627
  Serious: Yes (Other)
  Sender: FDA-Public Use
  Company Number: US-JNJFOC-20121205474

PATIENT
  Sex: Female

DRUGS (1)
  1. FLEXERIL [Suspect]
     Indication: MUSCLE RELAXANT THERAPY
     Route: 065

REACTIONS (3)
  - Delusion [Unknown]
  - Fall [Unknown]
  - Cervical vertebral fracture [Unknown]
